FAERS Safety Report 8206436-5 (Version None)
Quarter: 2012Q1

REPORT INFORMATION
  Report Type: 
  Country: None (occurrence: None)
  Receive Date: 20120313
  Receipt Date: 20120309
  Transmission Date: 20120608
  Serious: Yes (Other)
  Sender: FDA-Public Use
  Company Number: PHHY2012JP021331

PATIENT
  Sex: Male

DRUGS (5)
  1. EXFORGE [Suspect]
     Indication: HYPERTENSION
     Dosage: 1 DF, DAILY
     Route: 048
  2. RABEPRAZOLE SODIUM [Concomitant]
     Route: 048
  3. JANUVIA [Concomitant]
     Route: 048
  4. EPADEL [Concomitant]
     Route: 048
  5. HALCION [Concomitant]
     Route: 048

REACTIONS (4)
  - PALPITATIONS [None]
  - DIZZINESS [None]
  - TACHYCARDIA [None]
  - HYPOTENSION [None]
